FAERS Safety Report 7312574-1 (Version None)
Quarter: 2011Q1

REPORT INFORMATION
  Report Type: 
  Country: None (occurrence: None)
  Receive Date: 20110224
  Receipt Date: 20110117
  Transmission Date: 20110831
  Serious: Yes (Hospitalization)
  Sender: FDA-Public Use
  Company Number: PHHO2011LV01171

PATIENT
  Sex: Male
  Weight: 104 kg

DRUGS (8)
  1. ALISKIREN [Suspect]
     Indication: CARDIAC FAILURE
     Dosage: UNK
     Route: 048
  2. BLINDED ALISKIREN [Suspect]
     Indication: CARDIAC FAILURE
     Dosage: CODE NOT BROKEN
     Route: 048
     Dates: start: 20101230
  3. CONCOR [Concomitant]
  4. BLINDED NO TREATMENT RECEIVED [Suspect]
     Indication: CARDIAC FAILURE
     Dosage: CODE NOT BROKEN
     Route: 048
     Dates: start: 20101230
  5. BLINDED ENALAPRIL [Suspect]
     Indication: CARDIAC FAILURE
     Dosage: CODE NOT BROKEN
     Route: 048
     Dates: start: 20101230
  6. COMPARATOR ENALAPRIL [Suspect]
     Indication: CARDIAC FAILURE
     Dosage: UNK
     Route: 048
  7. METFORAL [Concomitant]
  8. DIAPREL [Concomitant]

REACTIONS (5)
  - STENT PLACEMENT [None]
  - ANGINA UNSTABLE [None]
  - PAIN [None]
  - CORONARY ANGIOPLASTY [None]
  - CORONARY ARTERY DISEASE [None]
